FAERS Safety Report 25311162 (Version 1)
Quarter: 2025Q2

REPORT INFORMATION
  Report Type: Report from Study
  Country: CA (occurrence: CA)
  Receive Date: 20250514
  Receipt Date: 20250514
  Transmission Date: 20250716
  Serious: Yes (Hospitalization, Other)
  Sender: CELLTRION
  Company Number: CA-CELLTRION INC.-2025CA014137

PATIENT

DRUGS (9)
  1. RITUXIMAB [Suspect]
     Active Substance: RITUXIMAB
     Indication: Rheumatoid arthritis
     Route: 042
  2. AMLODIPINE [Concomitant]
     Active Substance: AMLODIPINE BESYLATE
  3. FOLIC ACID [Concomitant]
     Active Substance: FOLIC ACID
  4. LEFLUNOMIDE [Concomitant]
     Active Substance: LEFLUNOMIDE
  5. METHOTREXATE [Concomitant]
     Active Substance: METHOTREXATE
  6. PANTOPRAZOLE [Concomitant]
     Active Substance: PANTOPRAZOLE
  7. PREDNISONE [Concomitant]
     Active Substance: PREDNISONE
  8. RISEDRONATE SODIUM [Concomitant]
     Active Substance: RISEDRONATE SODIUM
  9. TYLENOL [Concomitant]
     Active Substance: ACETAMINOPHEN
     Route: 048

REACTIONS (2)
  - Intestinal obstruction [Unknown]
  - Malignant gastrointestinal obstruction [Unknown]
